FAERS Safety Report 22006333 (Version 1)
Quarter: 2023Q1

REPORT INFORMATION
  Report Type: Report from Study
  Country: CA (occurrence: CA)
  Receive Date: 20230217
  Receipt Date: 20230217
  Transmission Date: 20230418
  Serious: Yes (Death)
  Sender: FDA-Public Use
  Company Number: CA-002147023-NVSC2023CA036623

PATIENT
  Age: 64 Year
  Sex: Female

DRUGS (1)
  1. KISQALI [Suspect]
     Active Substance: RIBOCICLIB
     Indication: Breast cancer metastatic
     Dosage: 600 MG, (ONCE DAILY FOR 21/ 28 DAYS, THEN 7 DAYS OFF MEDICATION).
     Route: 048
     Dates: start: 20220919

REACTIONS (1)
  - Death [Fatal]
